FAERS Safety Report 5560857-8 (Version None)
Quarter: 2007Q4

REPORT INFORMATION
  Report Type: 
  Country: None (occurrence: None)
  Receive Date: 20071215
  Receipt Date: 20071126
  Transmission Date: 20080405
  Serious: No
  Sender: FDA-Public Use
  Company Number: US-ABBOTT-07P-163-0426545-00

PATIENT
  Age: 40 Year
  Sex: Male

DRUGS (1)
  1. HUMIRA [Suspect]
     Indication: CROHN'S DISEASE
     Dosage: 160MG STARTER DOSE, THEN 80MG X 1, AND THEN 40MG EVERY OTHER WEEK
     Route: 058

REACTIONS (3)
  - DYSPNOEA [None]
  - RASH GENERALISED [None]
  - WEIGHT INCREASED [None]
